FAERS Safety Report 4983154-8 (Version None)
Quarter: 2006Q2

REPORT INFORMATION
  Report Type: 
  Country: None (occurrence: None)
  Receive Date: 20060419
  Receipt Date: 20060327
  Transmission Date: 20061013
  Serious: Yes (Hospitalization, Other)
  Sender: FDA-Public Use
  Company Number: DE200603006532

PATIENT
  Age: 83 Year
  Sex: Female

DRUGS (6)
  1. FORTEO [Suspect]
     Indication: OSTEOPOROSIS
     Dosage: 20 UG DAILY (1/D) SUBCUTANEOUS
     Route: 058
     Dates: start: 20050421, end: 20060228
  2. FORTEO [Concomitant]
  3. CALCIMAGON-D3 /SCH/(CALCIUM CARBONATE, COLECALCIFEROL) [Concomitant]
  4. RAMIPRIL [Concomitant]
  5. AMIODARONE HCL [Concomitant]
  6. GLUCOCORTICOIDS [Concomitant]

REACTIONS (1)
  - COLON CANCER [None]
